FAERS Safety Report 6004854-7 (Version None)
Quarter: 2008Q4

REPORT INFORMATION
  Report Type: 
  Country: None (occurrence: None)
  Receive Date: 20081216
  Receipt Date: 20081212
  Transmission Date: 20090506
  Serious: Yes (Other)
  Sender: FDA-Public Use
  Company Number: GR-ABBOTT-08P-066-0442603-00

PATIENT
  Age: 30 Year
  Sex: Female

DRUGS (1)
  1. REDUCTIL 10MG [Suspect]
     Indication: WEIGHT DECREASED
     Route: 048
     Dates: start: 20080125, end: 20080309

REACTIONS (1)
  - ABORTION INDUCED [None]
